FAERS Safety Report 6427032-6 (Version None)
Quarter: 2009Q4

REPORT INFORMATION
  Report Type: 
  Country: None (occurrence: None)
  Receive Date: 20091103
  Receipt Date: 20091103
  Transmission Date: 20100525
  Serious: Yes (Life-Threatening, Hospitalization)
  Sender: FDA-Public Use
  Company Number: None

PATIENT
  Age: 44 Year
  Sex: Male
  Weight: 90.41 kg

DRUGS (2)
  1. LAMOTRIGINE [Suspect]
     Dates: start: 20090514, end: 20090516
  2. DULOXETINE [Suspect]
     Dosage: 60 MG BID PO
     Route: 048
     Dates: start: 20081120, end: 20090516

REACTIONS (1)
  - SEROTONIN SYNDROME [None]
